FAERS Safety Report 12964417 (Version 1)
Quarter: 2016Q4

REPORT INFORMATION
  Report Type: Spontaneous
  Country: DE (occurrence: DE)
  Receive Date: 20161122
  Receipt Date: 20161122
  Transmission Date: 20170207
  Serious: Yes (Death)
  Sender: FDA-Public Use
  Company Number: DE-ELI_LILLY_AND_COMPANY-DE201611004871

PATIENT
  Sex: Female
  Weight: 50 kg

DRUGS (4)
  1. DEXAMETHASON                       /00016001/ [Concomitant]
     Active Substance: DEXAMETHASONE
     Indication: ANTIALLERGIC THERAPY
     Dosage: 8 MG, UNKNOWN
     Route: 065
     Dates: start: 20161012, end: 20161012
  2. GRANISETRON [Concomitant]
     Active Substance: GRANISETRON
     Indication: ANTIALLERGIC THERAPY
     Dosage: 1 MG, UNKNOWN
     Route: 065
     Dates: start: 20161012, end: 20161012
  3. FENISTIL [Concomitant]
     Active Substance: DIMETHINDENE
     Indication: ANTIALLERGIC THERAPY
     Dosage: 1 MG, UNKNOWN
     Route: 065
     Dates: start: 20161012, end: 20161012
  4. ERBITUX [Suspect]
     Active Substance: CETUXIMAB
     Indication: TONGUE NEOPLASM MALIGNANT STAGE UNSPECIFIED
     Dosage: 600 MG, UNK
     Route: 042
     Dates: start: 20161012, end: 20161012

REACTIONS (3)
  - Cardiovascular insufficiency [Fatal]
  - Cardiac arrest [Fatal]
  - Epilepsy [Fatal]

NARRATIVE: CASE EVENT DATE: 20161012
